FAERS Safety Report 7070672-4 (Version None)
Quarter: 2010Q4

REPORT INFORMATION
  Report Type: 
  Country: None (occurrence: None)
  Receive Date: 20101029
  Receipt Date: 20101021
  Transmission Date: 20110411
  Serious: Yes (Death)
  Sender: FDA-Public Use
  Company Number: IT-PFIZER INC-2010133845

PATIENT
  Age: 51 Year
  Sex: Male

DRUGS (2)
  1. TORVAST [Suspect]
     Dosage: 20 MG, 1X/DAY
     Route: 048
     Dates: start: 20090529, end: 20101006
  2. ESKIM [Concomitant]
     Indication: HYPERTRIGLYCERIDAEMIA
     Dosage: 1000 MG, UNK
     Route: 048
     Dates: start: 20070529, end: 20101006

REACTIONS (3)
  - ACUTE RESPIRATORY FAILURE [None]
  - RHABDOMYOLYSIS [None]
  - SHOCK [None]
